FAERS Safety Report 11643997 (Version 1)
Quarter: 2015Q4

REPORT INFORMATION
  Report Type: Spontaneous
  Country: None (occurrence: None)
  Receive Date: 20151019
  Receipt Date: 20151019
  Transmission Date: 20160304
  Serious: No
  Sender: FDA-Public Use
  Company Number: None

PATIENT
  Age: 51 Year
  Sex: Female
  Weight: 90.72 kg

DRUGS (7)
  1. RESTORIL [Concomitant]
     Active Substance: TEMAZEPAM
  2. BRINTELLIX [Suspect]
     Active Substance: VORTIOXETINE HYDROBROMIDE
     Indication: DEPRESSION
     Route: 048
     Dates: start: 20150917, end: 20151013
  3. XANAX [Concomitant]
     Active Substance: ALPRAZOLAM
  4. VITAMIN D [Concomitant]
     Active Substance: CHOLECALCIFEROL
  5. CALCIUM [Concomitant]
     Active Substance: CALCIUM
  6. NORVASC [Concomitant]
     Active Substance: AMLODIPINE BESYLATE
  7. MULTIVITAMIN [Concomitant]
     Active Substance: VITAMINS

REACTIONS (1)
  - Psychotic disorder [None]

NARRATIVE: CASE EVENT DATE: 20151013
